FAERS Safety Report 13444912 (Version 1)
Quarter: 2017Q2

REPORT INFORMATION
  Report Type: Spontaneous
  Country: SE (occurrence: SE)
  Receive Date: 20170414
  Receipt Date: 20170414
  Transmission Date: 20170830
  Serious: Yes (Hospitalization)
  Sender: FDA-Public Use
  Company Number: SE-TEVA-758334ISR

PATIENT
  Age: 16 Year
  Sex: Female

DRUGS (5)
  1. SUMATRIPTAN. [Suspect]
     Active Substance: SUMATRIPTAN
     Route: 065
  2. SERTRALINE [Suspect]
     Active Substance: SERTRALINE HYDROCHLORIDE
     Route: 065
  3. OMEPRAZOLE. [Suspect]
     Active Substance: OMEPRAZOLE
     Route: 065
  4. NAPROXEN. [Suspect]
     Active Substance: NAPROXEN
     Route: 065
  5. ALVEDON [Concomitant]
     Active Substance: ACETAMINOPHEN
     Route: 065

REACTIONS (4)
  - Toxicity to various agents [Recovered/Resolved]
  - Suicide attempt [Recovered/Resolved]
  - Analgesic drug level increased [Recovered/Resolved]
  - Overdose [Recovered/Resolved]
